FAERS Safety Report 4990275-2 (Version None)
Quarter: 2006Q2

REPORT INFORMATION
  Report Type: 
  Country: None (occurrence: None)
  Receive Date: 20060503
  Receipt Date: 20060422
  Transmission Date: 20061013
  Serious: Yes (Other)
  Sender: FDA-Public Use
  Company Number: 06-NEO-098

PATIENT
  Age: 42 Year
  Sex: Female

DRUGS (2)
  1. LAMOTRIGINE [Suspect]
     Indication: BIPOLAR DISORDER
     Route: 048
  2. CITALOPRAM [Concomitant]
     Indication: DEPRESSION
     Dosage: 40MG PER DAY
     Route: 048

REACTIONS (5)
  - HALLUCINATION, VISUAL [None]
  - HEADACHE [None]
  - HYPERACUSIS [None]
  - NIGHTMARE [None]
  - SLEEP DISORDER [None]
